FAERS Safety Report 4744264-3 (Version None)
Quarter: 2005Q3

REPORT INFORMATION
  Report Type: 
  Country: None (occurrence: None)
  Receive Date: 20050811
  Receipt Date: 20050811
  Transmission Date: 20060218
  Serious: Yes (Hospitalization)
  Sender: FDA-Public Use
  Company Number: None

PATIENT
  Age: 65 Year
  Sex: Male
  Weight: 100 kg

DRUGS (21)
  1. ATORVASTATIN   80MG    PFIZER [Suspect]
     Indication: HYPERLIPIDAEMIA
     Dosage: 80MG   QD HS   ORAL
     Route: 048
     Dates: start: 20050505, end: 20050606
  2. OMEPRAZOLE [Concomitant]
  3. SORBITOL [Concomitant]
  4. IPRATROPIUM BROMIDE [Concomitant]
  5. TEMAZEPAM [Concomitant]
  6. CARVEDILOL [Concomitant]
  7. FOSINOPRIL NA [Concomitant]
  8. GLIPIZIDE [Concomitant]
  9. FORMOTEROL FUMARATE [Concomitant]
  10. ALBUTEROL [Concomitant]
  11. NITROGLYCERIN [Concomitant]
  12. FLUNISOLIDE [Concomitant]
  13. BUMETANIDE [Concomitant]
  14. DOCUSATE NA [Concomitant]
  15. POTASSIUM CHLORIDE [Concomitant]
  16. SPIRONOLACTONE [Concomitant]
  17. INSULIN NOVOLIN 70/30 -NPH/REG- [Concomitant]
  18. METFORMIN HCL [Concomitant]
  19. METOCLOPRAMIDE HCL [Concomitant]
  20. SIMETHICONE [Concomitant]
  21. HYDROXYZINE PAMOATE [Concomitant]

REACTIONS (7)
  - ABDOMINAL DISCOMFORT [None]
  - ASTHENIA [None]
  - DECREASED APPETITE [None]
  - DEHYDRATION [None]
  - HEPATIC FAILURE [None]
  - NAUSEA [None]
  - VOMITING [None]
